FAERS Safety Report 5157815-4 (Version None)
Quarter: 2006Q4

REPORT INFORMATION
  Report Type: 
  Country: None (occurrence: None)
  Receive Date: 20061120
  Receipt Date: 20061120
  Transmission Date: 20070319
  Serious: Yes (Hospitalization)
  Sender: FDA-Public Use
  Company Number: None

PATIENT
  Age: 75 Year
  Sex: Male

DRUGS (11)
  1. THALIDOMIDE [Suspect]
     Indication: WALDENSTROM'S MACROGLOBULINAEMIA
     Dosage: 50 MG EVERY OTHER DAY PO
     Route: 048
  2. COREG [Concomitant]
  3. DECADRON [Concomitant]
  4. DIGOXIN [Concomitant]
  5. FOSAMAX [Concomitant]
  6. LASIX [Concomitant]
  7. IMDUR [Concomitant]
  8. LIPITOR [Concomitant]
  9. NEXIUM [Concomitant]
  10. BACTRIM DS [Concomitant]
  11. DECADRON [Concomitant]

REACTIONS (1)
  - NEUROPATHY [None]
